FAERS Safety Report 9269494 (Version 3)
Quarter: 2013Q3

REPORT INFORMATION
  Report Type: Spontaneous
  Country: US (occurrence: US)
  Receive Date: 20130503
  Receipt Date: 20130724
  Transmission Date: 20140515
  Serious: Yes (Other)
  Sender: FDA-Public Use
  Company Number: US-PFIZER INC-2013137061

PATIENT
  Sex: Female

DRUGS (1)
  1. LYRICA [Suspect]
     Dosage: UNK

REACTIONS (7)
  - Spinal cord neoplasm [Unknown]
  - Withdrawal syndrome [Unknown]
  - Local swelling [Unknown]
  - Nausea [Unknown]
  - Pain [Unknown]
  - Hyperhidrosis [Unknown]
  - Palpitations [Unknown]
